FAERS Safety Report 8790065 (Version 1)
Quarter: 2012Q4

REPORT INFORMATION
  Report Type: 
  Country: FR (occurrence: FR)
  Receive Date: 20120917
  Receipt Date: 20120917
  Transmission Date: 20130627
  Serious: Yes (Hospitalization)
  Sender: FDA-Public Use
  Company Number: FR-NOVOPROD-359451

PATIENT
  Age: 62 Year
  Sex: Female

DRUGS (9)
  1. VICTOZA [Suspect]
     Indication: TYPE 2 DIABETES MELLITUS
     Dosage: unknown
     Route: 058
  2. APROVEL [Suspect]
     Dosage: UNK
  3. ATENOLOL [Suspect]
     Dosage: UNK
     Route: 048
  4. ALDACTONE                          /00006201/ [Suspect]
     Dosage: UNK
     Route: 048
  5. KARDEGIC [Suspect]
     Dosage: UNK
     Route: 048
  6. TAHOR [Suspect]
     Dosage: UNK
     Route: 048
  7. LEXOMIL [Suspect]
     Dosage: UNK
     Route: 048
  8. ATARAX                             /00058401/ [Suspect]
     Dosage: UNK
  9. APIDRA [Suspect]
     Dosage: UNK
     Route: 058

REACTIONS (1)
  - Vascular purpura [Recovering/Resolving]
